FAERS Safety Report 16910948 (Version 2)
Quarter: 2019Q4

REPORT INFORMATION
  Report Type: Report from Study
  Country: BR (occurrence: BR)
  Receive Date: 20191012
  Receipt Date: 20191113
  Transmission Date: 20200122
  Serious: Yes (Other)
  Sender: FDA-Public Use
  Company Number: PHHY2019BR049628

PATIENT
  Sex: Female
  Weight: 98 kg

DRUGS (4)
  1. COSENTYX [Suspect]
     Active Substance: SECUKINUMAB
     Dosage: UNK
     Route: 065
     Dates: start: 201907
  2. COSENTYX [Suspect]
     Active Substance: SECUKINUMAB
     Dosage: UNK
     Route: 065
     Dates: start: 20190211
  3. COSENTYX [Suspect]
     Active Substance: SECUKINUMAB
     Dosage: UNK
     Route: 065
     Dates: start: 20190905
  4. COSENTYX [Suspect]
     Active Substance: SECUKINUMAB
     Indication: PSORIATIC ARTHROPATHY
     Dosage: 300 MG, QMO
     Route: 058
     Dates: start: 20181207

REACTIONS (8)
  - Burning sensation [Not Recovered/Not Resolved]
  - Arthralgia [Unknown]
  - Tuberculosis [Unknown]
  - Pruritus [Unknown]
  - Skin disorder [Not Recovered/Not Resolved]
  - Urinary tract infection [Recovered/Resolved]
  - Decreased immune responsiveness [Unknown]
  - Pain in extremity [Not Recovered/Not Resolved]
